FAERS Safety Report 4990285-5 (Version None)
Quarter: 2006Q2

REPORT INFORMATION
  Report Type: 
  Country: None (occurrence: None)
  Receive Date: 20060501
  Receipt Date: 20060501
  Transmission Date: 20061013
  Serious: Yes (Life-Threatening)
  Sender: FDA-Public Use
  Company Number: None

PATIENT
  Age: 48 Year
  Sex: Female

DRUGS (2)
  1. IDARUBICIN HCL [Suspect]
     Indication: MYELOID LEUKAEMIA
     Dosage: IV
     Route: 042
     Dates: start: 20060201, end: 20060203
  2. CYTARABINE [Suspect]
     Indication: MYELOID LEUKAEMIA
     Dosage: IV
     Route: 042
     Dates: start: 20060201, end: 20060207

REACTIONS (3)
  - FEBRILE NEUTROPENIA [None]
  - PANCYTOPENIA [None]
  - STAPHYLOCOCCAL INFECTION [None]
